FAERS Safety Report 6152634-4 (Version None)
Quarter: 2009Q2

REPORT INFORMATION
  Report Type: 
  Country: None (occurrence: None)
  Receive Date: 20090413
  Receipt Date: 20090402
  Transmission Date: 20091009
  Serious: Yes (Other)
  Sender: FDA-Public Use
  Company Number: CA-AVENTIS-200911818EU

PATIENT
  Age: 53 Year
  Sex: Male

DRUGS (6)
  1. RILUTEK [Suspect]
     Route: 048
     Dates: start: 20070201
  2. COUMADIN [Suspect]
     Route: 048
     Dates: start: 20080701
  3. EMPRACET-30 [Concomitant]
     Indication: PAIN
     Route: 048
     Dates: start: 20050101
  4. XANAX [Concomitant]
     Route: 048
     Dates: start: 20080101
  5. COLACE [Concomitant]
     Indication: CONSTIPATION
     Route: 048
  6. PENTASA [Concomitant]
     Indication: GASTROINTESTINAL DISORDER
     Dosage: DOSE: 2000MG AM AND 2500MG HS
     Route: 048
     Dates: start: 20060101

REACTIONS (4)
  - BURNING SENSATION [None]
  - ERYTHEMA [None]
  - PAIN [None]
  - PULMONARY EMBOLISM [None]
